FAERS Safety Report 15243771 (Version 3)
Quarter: 2018Q3

REPORT INFORMATION
  Report Type: Spontaneous
  Country: JP (occurrence: JP)
  Receive Date: 20180806
  Receipt Date: 20180817
  Transmission Date: 20181010
  Serious: Yes (Other)
  Sender: FDA-Public Use
  Company Number: JP-SA-2018SA203854

PATIENT
  Age: 3 Decade
  Sex: Female

DRUGS (1)
  1. FEXOFENADINE HYDROCHLORIDE. [Suspect]
     Active Substance: FEXOFENADINE HYDROCHLORIDE
     Indication: PRODUCT USED FOR UNKNOWN INDICATION
     Dosage: 60 DF
     Route: 048

REACTIONS (6)
  - Sinus tachycardia [Unknown]
  - Pyrexia [Unknown]
  - Nausea [Unknown]
  - Overdose [Unknown]
  - Agitation [Unknown]
  - Urinary retention [Unknown]
